FAERS Safety Report 22002100 (Version 1)
Quarter: 2023Q1

REPORT INFORMATION
  Report Type: Spontaneous
  Country: CN (occurrence: CN)
  Receive Date: 20230216
  Receipt Date: 20230216
  Transmission Date: 20230418
  Serious: Yes (Other)
  Sender: FDA-Public Use
  Company Number: None

PATIENT
  Age: 68 Year
  Sex: Female

DRUGS (6)
  1. CYCLOPHOSPHAMIDE [Suspect]
     Active Substance: CYCLOPHOSPHAMIDE
     Indication: Plasma cell myeloma
     Dosage: FIRST COURSE AS A PART OF VCD CHEMOTHERAPY, USED TWICE
     Route: 065
     Dates: start: 20221103
  2. CYCLOPHOSPHAMIDE [Suspect]
     Active Substance: CYCLOPHOSPHAMIDE
     Dosage: 0.3 G, ONCE IN A WEEK, SECOND COURSES OF VCD CHEMOTHERAPY
     Route: 041
     Dates: start: 20221201, end: 20221222
  3. BORTEZOMIB [Suspect]
     Active Substance: BORTEZOMIB
     Indication: Plasma cell myeloma
     Dosage: FIRST COURSE AS A PART OF VCD CHEMOTHERAPY
     Route: 065
     Dates: start: 20221103
  4. BORTEZOMIB [Suspect]
     Active Substance: BORTEZOMIB
     Dosage: 2 MG, ONCE EVERY 3 DAYS, SECOND COURSES OF VCD CHEMOTHERAPY
     Route: 058
     Dates: start: 20221201, end: 20221211
  5. DEXAMETHASONE [Suspect]
     Active Substance: DEXAMETHASONE
     Indication: Plasma cell myeloma
     Dosage: FIRST COURSE AS A PART OF VCD REGIMEN, USED ONCE
     Route: 065
     Dates: start: 20221103
  6. DEXAMETHASONE [Suspect]
     Active Substance: DEXAMETHASONE
     Dosage: SECOND COURSE AS A PART OF VCD REGIMEN
     Route: 065
     Dates: start: 20221201

REACTIONS (5)
  - Muscular weakness [Recovering/Resolving]
  - Hypoaesthesia [Recovering/Resolving]
  - Hypokinesia [Unknown]
  - Disease progression [Unknown]
  - Drug tolerance decreased [Unknown]

NARRATIVE: CASE EVENT DATE: 20230124
